FAERS Safety Report 21783866 (Version 2)
Quarter: 2023Q1

REPORT INFORMATION
  Report Type: Spontaneous
  Country: US (occurrence: US)
  Receive Date: 20221227
  Receipt Date: 20230209
  Transmission Date: 20230418
  Serious: Yes (Hospitalization, Other)
  Sender: FDA-Public Use
  Company Number: US-PFIZER INC-PV202200130685

PATIENT
  Age: 70 Year
  Sex: Female
  Weight: 63.492 kg

DRUGS (1)
  1. IBRANCE [Suspect]
     Active Substance: PALBOCICLIB
     Indication: Bone cancer
     Dosage: 125 MG, CYCLIC (ONCE A DAY FOR 3 WEEKS THEN OFF 1 WEEK)
     Dates: start: 202203

REACTIONS (3)
  - Gait disturbance [Unknown]
  - Hip surgery [Not Recovered/Not Resolved]
  - Product use in unapproved indication [Unknown]
